FAERS Safety Report 4929243-5 (Version None)
Quarter: 2006Q1

REPORT INFORMATION
  Report Type: 
  Country: None (occurrence: None)
  Receive Date: 20060301
  Receipt Date: 20060223
  Transmission Date: 20060701
  Serious: Yes (Disabling)
  Sender: FDA-Public Use
  Company Number: GB-SANOFI-SYNTHELABO-A01200601488

PATIENT
  Age: 47 Year
  Sex: Female

DRUGS (3)
  1. ELOXATIN [Suspect]
     Indication: RECTAL CANCER
     Route: 042
  2. CAPECITABINE [Concomitant]
     Route: 065
  3. RALITRIXATE [Concomitant]
     Route: 065

REACTIONS (5)
  - APHASIA [None]
  - COORDINATION ABNORMAL [None]
  - DEMYELINATION [None]
  - DYSARTHRIA [None]
  - NEUROLOGICAL SYMPTOM [None]
